FAERS Safety Report 7118784-0 (Version None)
Quarter: 2010Q4

REPORT INFORMATION
  Report Type: 
  Country: None (occurrence: None)
  Receive Date: 20101123
  Receipt Date: 20101112
  Transmission Date: 20110411
  Serious: Yes (Other)
  Sender: FDA-Public Use
  Company Number: CZ-ELI_LILLY_AND_COMPANY-CZ201009006274

PATIENT
  Sex: Female
  Weight: 17.5 kg

DRUGS (2)
  1. SOMATROPIN [Suspect]
     Indication: GROWTH HORMONE DEFICIENCY
     Dosage: UNKNOWN
     Route: 058
     Dates: start: 20060531, end: 20100423
  2. SOMATROPIN [Suspect]
     Dosage: 0.4 MG, DAILY (1/D)
     Route: 058
     Dates: start: 20100423, end: 20100809

REACTIONS (1)
  - SCOLIOSIS [None]
